FAERS Safety Report 15988651 (Version 1)
Quarter: 2019Q1

REPORT INFORMATION
  Report Type: Spontaneous
  Country: CZ (occurrence: CZ)
  Receive Date: 20190221
  Receipt Date: 20190221
  Transmission Date: 20190418
  Serious: Yes (Hospitalization, Other)
  Sender: FDA-Public Use
  Company Number: CZ-ACCORD-108933

PATIENT
  Age: 13 Month
  Sex: Male

DRUGS (4)
  1. METHOTREXATE. [Suspect]
     Active Substance: METHOTREXATE
     Indication: CHOROID PLEXUS CARCINOMA
  2. MACROGOL/MACROGOL STEARATE [Concomitant]
     Indication: CONSTIPATION
  3. ETOPOSIDE. [Suspect]
     Active Substance: ETOPOSIDE
     Indication: CHOROID PLEXUS CARCINOMA
  4. DIMETICONE [Concomitant]
     Active Substance: DIMETHICONE

REACTIONS (5)
  - Vomiting [Unknown]
  - Decreased appetite [Unknown]
  - Febrile neutropenia [Unknown]
  - Headache [Unknown]
  - Klebsiella infection [Unknown]
